FAERS Safety Report 7985325-5 (Version None)
Quarter: 2011Q4

REPORT INFORMATION
  Report Type: 
  Country: None (occurrence: None)
  Receive Date: 20111214
  Receipt Date: 20111205
  Transmission Date: 20120403
  Serious: Yes (Disabling, Other)
  Sender: FDA-Public Use
  Company Number: 2011SP048103

PATIENT
  Age: 80 Year
  Sex: Male

DRUGS (9)
  1. MOVICOL /01053601/ [Concomitant]
  2. ALBUTEROL SULFATE AUTOHALER [Concomitant]
  3. DEXAMETHASONE [Suspect]
     Indication: DECREASED APPETITE
     Dosage: 2 MG;BID;PO ; 4 MG;QD;PO
     Route: 048
     Dates: start: 20111001, end: 20111001
  4. DEXAMETHASONE [Suspect]
     Indication: ASTHENIA
     Dosage: 2 MG;BID;PO ; 4 MG;QD;PO
     Route: 048
     Dates: start: 20111001, end: 20111001
  5. DEXAMETHASONE [Suspect]
     Indication: DECREASED APPETITE
     Dosage: 2 MG;BID;PO ; 4 MG;QD;PO
     Route: 048
     Dates: start: 20110930, end: 20111001
  6. DEXAMETHASONE [Suspect]
     Indication: ASTHENIA
     Dosage: 2 MG;BID;PO ; 4 MG;QD;PO
     Route: 048
     Dates: start: 20110930, end: 20111001
  7. SALMETEROL [Concomitant]
  8. MS CONTIN [Concomitant]
  9. DECAPEPTYL SR [Concomitant]

REACTIONS (1)
  - DYSPNOEA [None]
